FAERS Safety Report 6558019-0 (Version None)
Quarter: 2010Q1

REPORT INFORMATION
  Report Type: 
  Country: None (occurrence: None)
  Receive Date: 20100129
  Receipt Date: 20100119
  Transmission Date: 20100710
  Serious: Yes (Death, Disabling, Other)
  Sender: FDA-Public Use
  Company Number: US-ELI_LILLY_AND_COMPANY-US200703003363

PATIENT
  Sex: Male

DRUGS (13)
  1. ZYPREXA [Suspect]
     Indication: CONFUSIONAL STATE
     Dosage: 10 MG, UNK
     Dates: start: 20041116, end: 20041118
  2. ZYPREXA [Suspect]
     Dates: start: 20041118, end: 20041122
  3. ZYPREXA [Suspect]
     Dosage: 25 MG, UNK
     Dates: start: 20041122, end: 20041123
  4. ZYPREXA [Suspect]
     Dosage: 15 MG, UNK
     Dates: start: 20041123
  5. ZYPREXA [Suspect]
     Dates: end: 20050201
  6. ZYPREXA [Suspect]
  7. ARICEPT [Concomitant]
     Dosage: 10 MG, UNK
     Dates: start: 20041116
  8. ATIVAN [Concomitant]
     Dosage: 1 MG, AS NEEDED
     Dates: start: 20041115, end: 20041117
  9. ATIVAN [Concomitant]
     Dosage: 35 MG, AS NEEDED
     Dates: start: 20041117, end: 20041118
  10. ROCEPHIN [Concomitant]
     Indication: CYSTITIS
     Dosage: 10 MG, UNK
     Dates: start: 20041115
  11. HALDOL [Concomitant]
     Dosage: 5 MG, UNK
     Dates: start: 20041115, end: 20041116
  12. RISPERDAL [Concomitant]
     Dates: start: 20041115, end: 20041116
  13. LEXAPRO [Concomitant]
     Dosage: 10 MG, UNK
     Dates: start: 20041116, end: 20050201

REACTIONS (16)
  - ASTHENIA [None]
  - CEREBROVASCULAR ACCIDENT [None]
  - CHOKING [None]
  - DEMENTIA [None]
  - DROOLING [None]
  - DYSKINESIA [None]
  - DYSPEPSIA [None]
  - FACIAL PALSY [None]
  - GAIT DISTURBANCE [None]
  - HYPOTENSION [None]
  - INCONTINENCE [None]
  - LETHARGY [None]
  - MUSCLE RIGIDITY [None]
  - PNEUMONIA [None]
  - PNEUMONIA ASPIRATION [None]
  - TREMOR [None]
